FAERS Safety Report 25522063 (Version 1)
Quarter: 2025Q3

REPORT INFORMATION
  Report Type: Spontaneous
  Country: CN (occurrence: CN)
  Receive Date: 20250707
  Receipt Date: 20250707
  Transmission Date: 20251020
  Serious: Yes (Hospitalization)
  Sender: ABBVIE
  Company Number: CN-ABBVIE-6355997

PATIENT
  Age: 38 Year
  Sex: Female
  Weight: 45 kg

DRUGS (4)
  1. VENETOCLAX [Suspect]
     Active Substance: VENETOCLAX
     Indication: Leukaemia
     Dosage: 100 MILLIGRAM
     Route: 048
     Dates: start: 20250424, end: 20250424
  2. VENETOCLAX [Suspect]
     Active Substance: VENETOCLAX
     Indication: Leukaemia
     Dosage: 400 MILLIGRAM
     Route: 048
     Dates: start: 20250526
  3. VENETOCLAX [Suspect]
     Active Substance: VENETOCLAX
     Indication: Leukaemia
     Dosage: 200 MILLIGRAM
     Route: 048
     Dates: start: 20250425, end: 20250425
  4. AZACITIDINE [Suspect]
     Active Substance: AZACITIDINE
     Indication: Acute myeloid leukaemia
     Dosage: 100 MILLIGRAM
     Route: 058
     Dates: start: 20250424, end: 20250501

REACTIONS (6)
  - Myelosuppression [Recovering/Resolving]
  - Fatigue [Unknown]
  - Palpitations [Unknown]
  - Gingival pain [Unknown]
  - Gingival swelling [Unknown]
  - Chest discomfort [Unknown]

NARRATIVE: CASE EVENT DATE: 20250507
